FAERS Safety Report 24773176 (Version 1)
Quarter: 2024Q4

REPORT INFORMATION
  Report Type: Spontaneous
  Country: RO (occurrence: RO)
  Receive Date: 20241225
  Receipt Date: 20241225
  Transmission Date: 20250115
  Serious: Yes (Death, Other)
  Sender: AMGEN
  Company Number: RO-ROCHE-10000149470

PATIENT
  Age: 65 Year
  Sex: Male

DRUGS (4)
  1. BEVACIZUMAB [Suspect]
     Active Substance: BEVACIZUMAB
     Indication: Adenocarcinoma metastatic
     Dosage: 15 MILLIGRAM/KILOGRAM, Q3WK
     Route: 040
     Dates: start: 202206
  2. ATEZOLIZUMAB [Suspect]
     Active Substance: ATEZOLIZUMAB
     Indication: Adenocarcinoma metastatic
     Dosage: 1200 MILLIGRAM, Q3WK
     Route: 040
     Dates: start: 202206
  3. PACLITAXEL [Suspect]
     Active Substance: PACLITAXEL
     Indication: Adenocarcinoma metastatic
     Dosage: 175 MILLIGRAM/SQ. METER, Q3WK
     Route: 040
     Dates: start: 202206
  4. CARBOPLATIN [Suspect]
     Active Substance: CARBOPLATIN
     Indication: Adenocarcinoma metastatic
     Dosage: UNK
     Route: 065
     Dates: start: 202206

REACTIONS (9)
  - Cardio-respiratory arrest [Fatal]
  - Pneumonia [Unknown]
  - Adenocarcinoma metastatic [Unknown]
  - Anaemia [Unknown]
  - Haemoptysis [Unknown]
  - Weight decreased [Unknown]
  - Upper respiratory tract infection [Unknown]
  - Bone disorder [Unknown]
  - Disease progression [Unknown]
